FAERS Safety Report 18551584 (Version 3)
Quarter: 2021Q1

REPORT INFORMATION
  Report Type: Report from Study
  Country: US (occurrence: US)
  Receive Date: 20201126
  Receipt Date: 20210203
  Transmission Date: 20210419
  Serious: No
  Sender: FDA-Public Use
  Company Number: NVSC2020US307936

PATIENT
  Age: 51 Year
  Sex: Female

DRUGS (1)
  1. KISQALI [Suspect]
     Active Substance: RIBOCICLIB
     Indication: BREAST CANCER METASTATIC
     Dosage: 400 MG, QD
     Route: 048
     Dates: start: 20201019, end: 20210112

REACTIONS (6)
  - Chills [Recovered/Resolved]
  - Pyrexia [Recovered/Resolved]
  - Dizziness [Recovering/Resolving]
  - Alopecia [Not Recovered/Not Resolved]
  - Headache [Recovering/Resolving]
  - Fatigue [Not Recovered/Not Resolved]

NARRATIVE: CASE EVENT DATE: 20210109
